FAERS Safety Report 10246387 (Version 3)
Quarter: 2017Q1

REPORT INFORMATION
  Report Type: Spontaneous
  Country: US (occurrence: US)
  Receive Date: 20140619
  Receipt Date: 20170131
  Transmission Date: 20170428
  Serious: Yes (Hospitalization)
  Sender: FDA-Public Use
  Company Number: US-PFIZER INC-2014167235

PATIENT
  Age: 46 Year
  Sex: Female
  Weight: 104.31 kg

DRUGS (2)
  1. LYRICA [Suspect]
     Active Substance: PREGABALIN
     Indication: FIBROMYALGIA
     Dosage: UNK
     Route: 048
  2. LYRICA [Suspect]
     Active Substance: PREGABALIN
     Indication: DIABETIC NEUROPATHY
     Dosage: 150 MG, 2X/DAY
     Route: 048

REACTIONS (11)
  - Cystitis [Unknown]
  - Condition aggravated [Not Recovered/Not Resolved]
  - White blood cell count increased [Unknown]
  - Dehydration [Unknown]
  - Mobility decreased [Unknown]
  - Urinary tract infection [Unknown]
  - Therapeutic response unexpected [Unknown]
  - Gastrointestinal infection [Unknown]
  - Pre-existing condition improved [Unknown]
  - Memory impairment [Not Recovered/Not Resolved]
  - Amnesia [Unknown]
